FAERS Safety Report 4925527-5 (Version None)
Quarter: 2006Q1

REPORT INFORMATION
  Report Type: 
  Country: None (occurrence: None)
  Receive Date: 20060228
  Receipt Date: 20050311
  Transmission Date: 20060701
  Serious: No
  Sender: FDA-Public Use
  Company Number: US-GLAXOSMITHKLINE-A0549413A

PATIENT
  Age: 42 Year
  Sex: Female

DRUGS (3)
  1. LAMICTAL [Suspect]
     Indication: BIPOLAR DISORDER
     Dosage: 400MG PER DAY
     Route: 048
     Dates: start: 20040601
  2. SEROQUEL [Concomitant]
  3. VALERIAN ROOT [Concomitant]

REACTIONS (5)
  - INFLUENZA LIKE ILLNESS [None]
  - INSOMNIA [None]
  - RASH [None]
  - ROSACEA [None]
  - VISION BLURRED [None]
